FAERS Safety Report 7733613-X (Version None)
Quarter: 2011Q3

REPORT INFORMATION
  Report Type: 
  Country: None (occurrence: None)
  Receive Date: 20110907
  Receipt Date: 20110830
  Transmission Date: 20111222
  Serious: Yes (Hospitalization)
  Sender: FDA-Public Use
  Company Number: JP-BRISTOL-MYERS SQUIBB COMPANY-16033243

PATIENT
  Age: 46 Year
  Sex: Male

DRUGS (2)
  1. ABILIFY [Suspect]
     Route: 048
     Dates: start: 20110824, end: 20110830
  2. RISPERIDONE [Suspect]
     Dosage: ALSO RECEIVED RISPERIDONE ORAL SOLUTION: 2 MG/DAY
     Route: 048
     Dates: start: 20110817, end: 20110830

REACTIONS (4)
  - BLOOD GLUCOSE INCREASED [None]
  - BLOOD CREATINE PHOSPHOKINASE INCREASED [None]
  - HEPATIC FUNCTION ABNORMAL [None]
  - ELECTROLYTE IMBALANCE [None]
